FAERS Safety Report 5151165-8 (Version None)
Quarter: 2006Q4

REPORT INFORMATION
  Report Type: 
  Country: None (occurrence: None)
  Receive Date: 20061114
  Receipt Date: 20061114
  Transmission Date: 20070319
  Serious: Yes (Hospitalization)
  Sender: FDA-Public Use
  Company Number: None

PATIENT
  Sex: Female
  Weight: 61.6892 kg

DRUGS (2)
  1. RITUXIMAB [Suspect]
     Indication: NON-HODGKIN'S LYMPHOMA STAGE IV
     Dosage: 375 MG/M2 (590MG) Q WEEK IV
     Route: 042
     Dates: start: 20061108
  2. RITUXIMAB [Suspect]

REACTIONS (6)
  - DYSPHAGIA [None]
  - DYSPNOEA [None]
  - MUSCLE TIGHTNESS [None]
  - SPEECH DISORDER [None]
  - SWELLING FACE [None]
  - TONGUE DISORDER [None]
